FAERS Safety Report 6345761-X (Version None)
Quarter: 2009Q3

REPORT INFORMATION
  Report Type: 
  Country: None (occurrence: None)
  Receive Date: 20090909
  Receipt Date: 20090904
  Transmission Date: 20100115
  Serious: Yes (Congenital Anomaly)
  Sender: FDA-Public Use
  Company Number: DE-TEVA-208320ISR

PATIENT
  Sex: Male

DRUGS (4)
  1. COPAXONE [Suspect]
     Route: 064
  2. LEVOTHYROXINE SODIUM [Concomitant]
     Route: 064
  3. IODINE [Concomitant]
     Route: 064
  4. FOLIC ACID [Concomitant]
     Route: 064

REACTIONS (1)
  - TALIPES [None]
